FAERS Safety Report 18944430 (Version 1)
Quarter: 2021Q1

REPORT INFORMATION
  Report Type: Spontaneous
  Country: BR (occurrence: BR)
  Receive Date: 20210226
  Receipt Date: 20210226
  Transmission Date: 20210420
  Serious: Yes (Hospitalization, Other)
  Sender: FDA-Public Use
  Company Number: BR-AMGEN-BRASP2021028688

PATIENT
  Sex: Female

DRUGS (2)
  1. BLINCYTO [Suspect]
     Active Substance: BLINATUMOMAB
     Indication: PRODUCT USED FOR UNKNOWN INDICATION
     Dosage: INFUSION RATE OF 10ML/H
     Route: 065
     Dates: start: 202102, end: 20210220
  2. BLINCYTO [Suspect]
     Active Substance: BLINATUMOMAB
     Dosage: UNK
     Route: 065
     Dates: start: 20210220, end: 202102

REACTIONS (4)
  - Shock [Recovering/Resolving]
  - White blood cell disorder [Unknown]
  - Incorrect drug administration rate [Unknown]
  - Pyrexia [Unknown]

NARRATIVE: CASE EVENT DATE: 202102
